FAERS Safety Report 22336347 (Version 6)
Quarter: 2023Q4

REPORT INFORMATION
  Report Type: Report from Study
  Country: CA (occurrence: CA)
  Receive Date: 20230518
  Receipt Date: 20231114
  Transmission Date: 20240110
  Serious: Yes (Other)
  Sender: FDA-Public Use
  Company Number: CA-JNJFOC-20230246649

PATIENT
  Age: 4 Decade
  Sex: Female

DRUGS (2)
  1. STELARA [Suspect]
     Active Substance: USTEKINUMAB
     Indication: Crohn^s disease
     Dosage: EXPIRY DATE :31-JAN-2026, 28-FEB-2026, MAR-2026?ON 22-SEP-2023,THE PATIENT RECEIVED 30TH STELARA INJ
     Route: 058
     Dates: start: 20190524
  2. STELARA [Suspect]
     Active Substance: USTEKINUMAB

REACTIONS (9)
  - Intestinal fistula infection [Not Recovered/Not Resolved]
  - Intestinal fistula [Unknown]
  - Surgery [Unknown]
  - Gastrointestinal bacterial infection [Unknown]
  - Suspected COVID-19 [Not Recovered/Not Resolved]
  - General physical condition abnormal [Unknown]
  - Diarrhoea [Unknown]
  - Abdominal pain [Unknown]
  - Inappropriate schedule of product administration [Unknown]

NARRATIVE: CASE EVENT DATE: 20230201
